FAERS Safety Report 7630020-5 (Version None)
Quarter: 2011Q3

REPORT INFORMATION
  Report Type: 
  Country: None (occurrence: None)
  Receive Date: 20110715
  Receipt Date: 20110630
  Transmission Date: 20111222
  Serious: Yes (Hospitalization, Other)
  Sender: FDA-Public Use
  Company Number: 2011P1007600

PATIENT
  Age: 59 Year
  Sex: Male
  Weight: 84.3 kg

DRUGS (18)
  1. AMITRIPTYLINE HCL [Concomitant]
  2. FENTANYL [Suspect]
     Indication: ARTHRITIS
     Dosage: ;TDER
     Route: 062
  3. DURAGESIC-100 [Suspect]
     Dosage: ;TDER
     Route: 062
  4. AMITRIPTYLINE HCL [Concomitant]
  5. ACYCLOVIR 5% [Concomitant]
  6. UNSPECIFIED ANTIBIOTIS (NO PREF. NAME) [Suspect]
     Dates: start: 20110116
  7. ACETYLSALICYLIC ACID SRT [Suspect]
  8. ENALAPRIL MALEATE [Concomitant]
  9. OMEPRAZOLE [Concomitant]
  10. PREGABALIN [Concomitant]
  11. FERROUS SULFATE TAB [Concomitant]
  12. MORPHINE [Concomitant]
  13. CITALOPRAM HYDROBROMIDE [Concomitant]
  14. ETODOLAC [Concomitant]
  15. ACETAMINOPHEN [Concomitant]
  16. MORPHEGSIC SR [Concomitant]
  17. FENTANYL [Suspect]
     Indication: ARTHRITIS
     Dosage: 50 MCG/HR;Q72H;TDER
     Route: 062
  18. ENALAPRIL MALEATE [Concomitant]

REACTIONS (40)
  - HEART RATE INCREASED [None]
  - MOOD SWINGS [None]
  - SEXUAL DYSFUNCTION [None]
  - RESPIRATORY DISORDER [None]
  - ADVERSE EVENT [None]
  - WEIGHT INCREASED [None]
  - OXYGEN SATURATION DECREASED [None]
  - CEREBROVASCULAR ACCIDENT [None]
  - ANAEMIA [None]
  - HYPERTENSION [None]
  - AGITATION [None]
  - LOWER RESPIRATORY TRACT INFECTION [None]
  - CONJUNCTIVITIS [None]
  - MUSCLE SPASMS [None]
  - PERIPHERAL COLDNESS [None]
  - PAIN [None]
  - ERYTHEMA [None]
  - SKIN IRRITATION [None]
  - HYPOTENSION [None]
  - DIZZINESS [None]
  - DELUSION [None]
  - CONFUSIONAL STATE [None]
  - AGGRESSION [None]
  - DYSKINESIA [None]
  - INFLUENZA LIKE ILLNESS [None]
  - HEADACHE [None]
  - SOCIAL AVOIDANT BEHAVIOUR [None]
  - FATIGUE [None]
  - GASTRIC DISORDER [None]
  - HYPERHIDROSIS [None]
  - WITHDRAWAL SYNDROME [None]
  - ASTHENIA [None]
  - HYPERSENSITIVITY [None]
  - AMNESIA [None]
  - SKIN REACTION [None]
  - HALLUCINATION [None]
  - MUSCULAR WEAKNESS [None]
  - TRANSIENT ISCHAEMIC ATTACK [None]
  - DRUG INTOLERANCE [None]
  - RENAL DISORDER [None]
